FAERS Safety Report 6774760-9 (Version None)
Quarter: 2010Q2

REPORT INFORMATION
  Report Type: 
  Country: None (occurrence: None)
  Receive Date: 20100616
  Receipt Date: 20100616
  Transmission Date: 20101027
  Serious: Yes (Other)
  Sender: FDA-Public Use
  Company Number: None

PATIENT
  Age: 68 Year
  Sex: Female
  Weight: 80.7403 kg

DRUGS (1)
  1. BOTOX [Suspect]
     Indication: MUSCLE DISORDER
     Dates: start: 20100104, end: 20100105

REACTIONS (1)
  - DIPLOPIA [None]
